FAERS Safety Report 19091018 (Version 2)
Quarter: 2021Q2

REPORT INFORMATION
  Report Type: Spontaneous
  Country: US (occurrence: US)
  Receive Date: 20210405
  Receipt Date: 20210412
  Transmission Date: 20210717
  Serious: Yes (Hospitalization, Other)
  Sender: FDA-Public Use
  Company Number: US-GLENMARK PHARMACEUTICALS-2021GMK053165

PATIENT
  Age: 65 Year
  Sex: Male

DRUGS (4)
  1. CELLCEPT [Suspect]
     Active Substance: MYCOPHENOLATE MOFETIL\MYCOPHENOLATE MOFETIL HYDROCHLORIDE
     Indication: IMMUNOSUPPRESSANT DRUG THERAPY
     Dosage: 500 MILLIGRAM, TID (THREE TIMES A DAY, EVERY 8 HOURS)
     Route: 065
  2. TACROLIMUS. [Suspect]
     Active Substance: TACROLIMUS
     Indication: IMMUNOSUPPRESSANT DRUG THERAPY
     Dosage: 0.5 MILLIGRAM, BID (ALTERNATING DOSE OF 0.5 MG AND 0.25 MG TWICE A DAY)
     Route: 065
  3. PREDNISONE. [Suspect]
     Active Substance: PREDNISONE
     Indication: IMMUNOSUPPRESSANT DRUG THERAPY
     Dosage: 10 MILLIGRAM, QD (DAILY)
     Route: 065
  4. TACROLIMUS. [Suspect]
     Active Substance: TACROLIMUS
     Dosage: 0.25 MILLIGRAM, BID (ALTERNATING DOSE OF 0.5 MG AND 0.25 MG TWICE A DAY)
     Route: 065

REACTIONS (5)
  - Acute kidney injury [Recovered/Resolved]
  - Optic atrophy [Unknown]
  - Varicella zoster virus infection [Recovered/Resolved]
  - Toxicity to various agents [Unknown]
  - Optic neuropathy [Unknown]
